FAERS Safety Report 17528641 (Version 3)
Quarter: 2020Q2

REPORT INFORMATION
  Report Type: Report from Study
  Country: None (occurrence: IL)
  Receive Date: 20200312
  Receipt Date: 20200506
  Transmission Date: 20200713
  Serious: Yes (Hospitalization)
  Sender: FDA-Public Use
  Company Number: IL-ABBVIE-20K-082-3311156-00

PATIENT
  Sex: Female

DRUGS (2)
  1. DUODOPA [Suspect]
     Active Substance: CARBIDOPA\LEVODOPA
     Indication: PARKINSON^S DISEASE
     Dosage: CURRENT MORNING DOSE- 18 ML, CONTINUOUS RATE- 5.0 ML/ HOUR,?CURRENT EXTRA DOSE- 1.5 ML
     Route: 050
     Dates: start: 20191212
  2. DUODOPA [Suspect]
     Active Substance: CARBIDOPA\LEVODOPA
     Dosage: CURRENT MORNING DOSE 18ML,?CURRENT CONTINUOUS DOSE 5ML/HOUR,?CURRENT ED1.5ML
     Route: 050

REACTIONS (3)
  - Heart rate irregular [Recovered/Resolved]
  - Myocardial infarction [Not Recovered/Not Resolved]
  - Asthenia [Recovered/Resolved]
